FAERS Safety Report 22163384 (Version 2)
Quarter: 2024Q4

REPORT INFORMATION
  Report Type: Spontaneous
  Country: BR (occurrence: BR)
  Receive Date: 20230401
  Receipt Date: 20241008
  Transmission Date: 20250114
  Serious: No
  Sender: CELLTRION
  Company Number: BR-CELLTRION INC.-2023BR006738

PATIENT

DRUGS (5)
  1. INFLIXIMAB [Suspect]
     Active Substance: INFLIXIMAB
     Indication: Colitis ulcerative
     Dosage: 4 AMPOULES OF 100 MG (400 MG) EVERY 2 MONTHS
     Route: 042
     Dates: start: 20220831
  2. INFLIXIMAB [Suspect]
     Active Substance: INFLIXIMAB
     Dosage: 4 AMPOULES OF 100 MG (400 MG) EVERY 2 MONTHS
     Route: 042
     Dates: start: 20240802
  3. ATORVASTATIN [Concomitant]
     Active Substance: ATORVASTATIN
     Indication: Blood cholesterol increased
     Dosage: 1 CP PER DAY, START: 5 YEARS STOP: IN USE
     Route: 048
  4. HYDROCHLOROTHIAZIDE\LOSARTAN [Concomitant]
     Active Substance: HYDROCHLOROTHIAZIDE\LOSARTAN
     Indication: Hypertension
     Dosage: 1 CP PER DAY, START: 5 YEARS STOP: IN USE
     Route: 048
  5. METOPROLOL [Concomitant]
     Active Substance: METOPROLOL
     Indication: Hypertension
     Dosage: 1 CP PER DAY, START: 5 YEARS STOP: IN USE
     Route: 048

REACTIONS (2)
  - Therapy interrupted [Unknown]
  - Product supply issue [Unknown]
